FAERS Safety Report 24378699 (Version 1)
Quarter: 2024Q3

REPORT INFORMATION
  Report Type: Spontaneous
  Country: ES (occurrence: ES)
  Receive Date: 20240930
  Receipt Date: 20240930
  Transmission Date: 20241016
  Serious: Yes (Other)
  Sender: BIOGEN
  Company Number: ES-BIOGEN-2024BI01284074

PATIENT
  Age: 31 Year
  Sex: Female

DRUGS (2)
  1. TYSABRI [Suspect]
     Active Substance: NATALIZUMAB
     Indication: Multiple sclerosis
     Route: 050
     Dates: start: 202201
  2. CALCIFEDIOL [Concomitant]
     Active Substance: CALCIFEDIOL
     Indication: Product used for unknown indication
     Dosage: 0.266 MCG MONTHLY
     Route: 050

REACTIONS (2)
  - Abortion [Unknown]
  - Maternal exposure during pregnancy [Recovered/Resolved]

NARRATIVE: CASE EVENT DATE: 20231001
